FAERS Safety Report 14824654 (Version 7)
Quarter: 2019Q1

REPORT INFORMATION
  Report Type: Spontaneous
  Country: DE (occurrence: DE)
  Receive Date: 20180429
  Receipt Date: 20190329
  Transmission Date: 20190417
  Serious: Yes (Hospitalization, Other)
  Sender: FDA-Public Use
  Company Number: DE-BIOGEN-2018BI00558752

PATIENT
  Age: 35 Year
  Sex: Female
  Weight: 52 kg

DRUGS (1)
  1. TYSABRI [Suspect]
     Active Substance: NATALIZUMAB
     Indication: MULTIPLE SCLEROSIS
     Route: 050
     Dates: start: 20131112, end: 20180110

REACTIONS (3)
  - Progressive multifocal leukoencephalopathy [Unknown]
  - Multiple sclerosis [Unknown]
  - Immune reconstitution inflammatory syndrome [Unknown]

NARRATIVE: CASE EVENT DATE: 201803
